FAERS Safety Report 21197861 (Version 5)
Quarter: 2023Q1

REPORT INFORMATION
  Report Type: Spontaneous
  Country: JP (occurrence: JP)
  Receive Date: 20220810
  Receipt Date: 20230117
  Transmission Date: 20230417
  Serious: Yes (Hospitalization, Other)
  Sender: FDA-Public Use
  Company Number: JP-AMGEN-JPNSP2022134920

PATIENT
  Age: 87 Year
  Sex: Female
  Weight: 39.2 kg

DRUGS (19)
  1. EVENITY [Suspect]
     Active Substance: ROMOSOZUMAB-AQQG
     Indication: Osteoporosis
     Dosage: 210 MILLIGRAM, QMO
     Route: 058
     Dates: start: 20201029, end: 20220823
  2. LINAGLIPTIN [Concomitant]
     Active Substance: LINAGLIPTIN
     Dosage: 1 DOSAGE FORM, QD MORNING
  3. RABEPRAZOLE [Concomitant]
     Active Substance: RABEPRAZOLE
     Dosage: 1 DOSAGE FORM, QD MORNING
  4. ASPIRIN [Concomitant]
     Active Substance: ASPIRIN
     Dosage: 1 DOSAGE FORM, QD MORNING
  5. AMLODIPINE [Concomitant]
     Active Substance: AMLODIPINE BESYLATE
     Dosage: 1 DOSAGE FORM, QD MORNING
  6. METHYLCOBALAMIN [Concomitant]
     Active Substance: METHYLCOBALAMIN
     Dosage: 1 DOSAGE FORM, QD MORNING
  7. MOSAPRIDE [Concomitant]
     Active Substance: MOSAPRIDE
     Dosage: 1 DOSAGE FORM, TID
  8. MEMANTINE [Concomitant]
     Active Substance: MEMANTINE
     Dosage: 1 DOSAGE FORM, QD EVENING
  9. CALONAL [Concomitant]
     Active Substance: ACETAMINOPHEN
     Dosage: 2 DOSAGE FORM, TID
  10. DAYVIGO [Concomitant]
     Active Substance: LEMBOREXANT
     Dosage: 1 DOSAGE FORM, QD BEFORE BEDTIME
  11. LINZESS [Concomitant]
     Active Substance: LINACLOTIDE
     Dosage: 1 DOSAGE FORM, BID MORNING
  12. MAGNESIUM OXIDE [Concomitant]
     Active Substance: MAGNESIUM OXIDE
     Dosage: 1 DOSAGE FORM, QD MORNING
  13. LUNESTA [Concomitant]
     Active Substance: ESZOPICLONE
     Indication: Insomnia
     Dosage: 1 DOSAGE FORM, AS NECESSARY
  14. BISACODYL [Concomitant]
     Active Substance: BISACODYL
     Indication: Defaecation disorder
     Dosage: UNK UNK, AS NECESSARY
  15. SODIUM PICOSULFATE [Concomitant]
     Active Substance: SODIUM PICOSULFATE
     Indication: Defaecation disorder
     Dosage: UNK UNK, AS NECESSARY
  16. SULPIRIDE [Concomitant]
     Active Substance: SULPIRIDE
     Dosage: UNK
     Dates: end: 20220603
  17. CEFACLOR [Concomitant]
     Active Substance: CEFACLOR
     Dosage: UNK
  18. SENNOSIDES [Concomitant]
     Active Substance: SENNOSIDES
     Dosage: UNK
  19. MEMANTINE HYDROCHLORIDE [Concomitant]
     Active Substance: MEMANTINE HYDROCHLORIDE
     Dosage: 20 MG TO 15 MG

REACTIONS (17)
  - Foot fracture [Unknown]
  - Fibula fracture [Unknown]
  - Fall [Unknown]
  - Hallucination, visual [Unknown]
  - Cellulitis [Recovering/Resolving]
  - Spinal compression fracture [Unknown]
  - Pain in extremity [Unknown]
  - Hypophagia [Unknown]
  - Blood thyroid stimulating hormone increased [Unknown]
  - Anti-thyroid antibody increased [Unknown]
  - Hepatic cyst [Unknown]
  - Tibia fracture [Unknown]
  - Cognitive disorder [Unknown]
  - Somnolence [Unknown]
  - Insomnia [Unknown]
  - Weight decreased [Recovering/Resolving]
  - Musculoskeletal stiffness [Unknown]

NARRATIVE: CASE EVENT DATE: 20220509
